FAERS Safety Report 18717647 (Version 1)
Quarter: 2021Q1

REPORT INFORMATION
  Report Type: Spontaneous
  Country: DE (occurrence: DE)
  Receive Date: 20210108
  Receipt Date: 20210108
  Transmission Date: 20210419
  Serious: Yes (Other)
  Sender: FDA-Public Use
  Company Number: DE-PFIZER INC-2021005136

PATIENT
  Age: 5 Year
  Sex: Male

DRUGS (1)
  1. TAVOR EXPIDET [Suspect]
     Active Substance: LORAZEPAM
     Indication: SEIZURE
     Route: 048

REACTIONS (2)
  - Off label use [Unknown]
  - Aspiration [Unknown]
